FAERS Safety Report 6888240-3 (Version None)
Quarter: 2010Q3

REPORT INFORMATION
  Report Type: 
  Country: None (occurrence: None)
  Receive Date: 20100730
  Receipt Date: 20100722
  Transmission Date: 20110219
  Serious: Yes (Other)
  Sender: FDA-Public Use
  Company Number: GXKR2010FR08145

PATIENT
  Age: 74 Year
  Sex: Female

DRUGS (6)
  1. DROPERIDOL (NGX) [Suspect]
     Indication: ANAESTHESIA
     Dosage: 0.5 MG, UNK
     Route: 065
  2. HYDROXYZINE (NGX) [Suspect]
     Indication: PREMEDICATION
     Dosage: 100 MG, UNK
     Route: 048
  3. PRAMIPEXOLE DIHYDROCHLORIDE [Concomitant]
     Dosage: 0.09 MG AT 6 PM, 0.18 MG AT 10 PM
  4. PROPOFOL [Concomitant]
     Dosage: 100 MG, UNK
     Route: 065
  5. MIDAZOLAM HCL [Concomitant]
     Dosage: 5 MG, UNK
     Route: 065
  6. SUFENTANIL [Concomitant]
     Dosage: 20 UG, UNK
     Route: 065

REACTIONS (9)
  - BACK PAIN [None]
  - HAEMATOMA [None]
  - HAEMATOMA EVACUATION [None]
  - INSOMNIA [None]
  - LIMB DISCOMFORT [None]
  - PARAESTHESIA [None]
  - RESTLESS LEGS SYNDROME [None]
  - SYSTOLIC HYPERTENSION [None]
  - TACHYCARDIA [None]
